FAERS Safety Report 13356716 (Version 4)
Quarter: 2017Q2

REPORT INFORMATION
  Report Type: Spontaneous
  Country: BR (occurrence: BR)
  Receive Date: 20170321
  Receipt Date: 20170509
  Transmission Date: 20170830
  Serious: Yes (Hospitalization)
  Sender: FDA-Public Use
  Company Number: BR-ALLERGAN-1710186US

PATIENT
  Age: 33 Year
  Sex: Male
  Weight: 99 kg

DRUGS (2)
  1. LOSARTAN. [Concomitant]
     Active Substance: LOSARTAN
     Indication: HYPERTENSION
     Dosage: 50 MG, UNK
  2. ATROPINA 1% [Suspect]
     Active Substance: ATROPINE
     Indication: ACCIDENTAL EXPOSURE TO PRODUCT
     Dosage: 2 GTT, SINGLE
     Route: 047
     Dates: start: 20170310

REACTIONS (7)
  - Wrong drug administered [Unknown]
  - Vision blurred [Recovered/Resolved]
  - Headache [Not Recovered/Not Resolved]
  - Burning sensation [Recovered/Resolved]
  - Intentional product misuse [Unknown]
  - Mydriasis [Recovered/Resolved]
  - Hypoaesthesia eye [Recovered/Resolved]

NARRATIVE: CASE EVENT DATE: 20170310
